FAERS Safety Report 11331324 (Version 1)
Quarter: 2015Q3

REPORT INFORMATION
  Report Type: Spontaneous
  Country: DE (occurrence: DE)
  Receive Date: 20150803
  Receipt Date: 20150803
  Transmission Date: 20151125
  Serious: Yes (Hospitalization)
  Sender: FDA-Public Use
  Company Number: DE-ASTRAZENECA-2015SE73267

PATIENT
  Age: 19 Year
  Sex: Male

DRUGS (5)
  1. SEROQUEL [Suspect]
     Active Substance: QUETIAPINE FUMARATE
     Route: 048
     Dates: start: 20080521
  2. ZELDOX [Interacting]
     Active Substance: ZIPRASIDONE
     Route: 065
     Dates: start: 20080502, end: 20080602
  3. AKINETON [Concomitant]
     Active Substance: BIPERIDEN HYDROCHLORIDE
     Dates: start: 20080329
  4. ZELDOX [Interacting]
     Active Substance: ZIPRASIDONE
     Route: 065
     Dates: start: 20080429, end: 20080501
  5. ZELDOX [Interacting]
     Active Substance: ZIPRASIDONE
     Route: 065
     Dates: start: 20080603

REACTIONS (4)
  - Granulocytopenia [Recovered/Resolved]
  - Platelet count decreased [Recovered/Resolved]
  - Drug interaction [Recovered/Resolved]
  - Leukopenia [Recovered/Resolved]

NARRATIVE: CASE EVENT DATE: 20080609
